FAERS Safety Report 17354585 (Version 1)
Quarter: 2020Q1

REPORT INFORMATION
  Report Type: Report from Study
  Country: US (occurrence: US)
  Receive Date: 20200131
  Receipt Date: 20200131
  Transmission Date: 20200409
  Serious: Yes (Hospitalization, Other)
  Sender: FDA-Public Use
  Company Number: US-EMD SERONO-9142429

PATIENT
  Sex: Female

DRUGS (2)
  1. MAVENCLAD [Suspect]
     Active Substance: CLADRIBINE
     Dosage: YEAR ONE MONTH TWO THERAPY.
     Route: 048
     Dates: start: 20191216
  2. MAVENCLAD [Suspect]
     Active Substance: CLADRIBINE
     Indication: MULTIPLE SCLEROSIS
     Dosage: YEAR ONE MONTH ONE THERAPY: TWO TABLETS DAILY IN THE FIRST TWO DAYS AND ONE TABLET DAILY IN THE FOLL
     Route: 048
     Dates: start: 20191120

REACTIONS (3)
  - Influenza [Unknown]
  - Pneumonia [Unknown]
  - White blood cell count decreased [Recovering/Resolving]
